FAERS Safety Report 24586311 (Version 3)
Quarter: 2025Q1

REPORT INFORMATION
  Report Type: Spontaneous
  Country: PL (occurrence: PL)
  Receive Date: 20241106
  Receipt Date: 20250213
  Transmission Date: 20250409
  Serious: Yes (Other)
  Sender: BAUSCH AND LOMB
  Company Number: PL-Adamed-2024-AER-00425

PATIENT
  Sex: Male

DRUGS (2)
  1. DEXAMETHASONE [Suspect]
     Active Substance: DEXAMETHASONE
     Indication: Lung cancer metastatic
     Route: 065
  2. FENTANYL [Interacting]
     Active Substance: FENTANYL
     Indication: Lung cancer metastatic
     Route: 065

REACTIONS (1)
  - Adrenal insufficiency [Unknown]
